FAERS Safety Report 9958965 (Version 1)
Quarter: 2014Q1

REPORT INFORMATION
  Report Type: Report from Study
  Country: US (occurrence: US)
  Receive Date: 20140305
  Receipt Date: 20140305
  Transmission Date: 20141002
  Serious: No
  Sender: FDA-Public Use
  Company Number: US-ABBVIE-13P-163-1104407-00

PATIENT
  Age: 49 Year
  Sex: Female

DRUGS (4)
  1. HUMIRA [Suspect]
     Indication: PSORIASIS
     Dates: start: 20130601, end: 20130601
  2. HUMIRA [Suspect]
     Dates: start: 20130608, end: 20130608
  3. ATORVASTATIN [Concomitant]
     Indication: BLOOD CHOLESTEROL
     Dosage: HAD BEEN ON FOR ABOUT 6 MONTHS
  4. ZOLOFT [Concomitant]
     Indication: MENOPAUSAL DEPRESSION
     Dosage: BEEN ON FOR 1-2 YEARS

REACTIONS (3)
  - Injection site erythema [Recovering/Resolving]
  - Injection site bruising [Recovering/Resolving]
  - Injection site pruritus [Recovering/Resolving]
